FAERS Safety Report 8165836-2 (Version None)
Quarter: 2012Q1

REPORT INFORMATION
  Report Type: 
  Country: None (occurrence: None)
  Receive Date: 20120223
  Receipt Date: 20120223
  Transmission Date: 20120608
  Serious: Yes (Other)
  Sender: FDA-Public Use
  Company Number: None

PATIENT
  Sex: Female
  Weight: 100.6985 kg

DRUGS (1)
  1. OXYCODONE AND ACETAMINOPHEN [Suspect]
     Indication: PROCEDURAL PAIN
     Dosage: 1 TO 2 TABLETS EVERY 4 HOURS BY MOUTH
     Route: 048
     Dates: start: 20120126, end: 20120201

REACTIONS (2)
  - TREMOR [None]
  - WITHDRAWAL SYNDROME [None]
